FAERS Safety Report 7805468-6 (Version None)
Quarter: 2011Q4

REPORT INFORMATION
  Report Type: 
  Country: None (occurrence: None)
  Receive Date: 20111010
  Receipt Date: 20110927
  Transmission Date: 20120403
  Serious: Yes (Other)
  Sender: FDA-Public Use
  Company Number: PHEH2011US05031

PATIENT
  Sex: Female
  Weight: 81.633 kg

DRUGS (11)
  1. EFFEXOR [Concomitant]
  2. LORTAB [Concomitant]
  3. TOPAMAX [Concomitant]
  4. EFFIXN [Concomitant]
     Route: 048
  5. POTASSIUM [Concomitant]
  6. ASPIRIN ADUL [Concomitant]
  7. ATIVAN [Concomitant]
  8. TYLENOL-500 [Concomitant]
  9. GILENYA [Suspect]
     Indication: RELAPSING-REMITTING MULTIPLE SCLEROSIS
     Dosage: 0.5 MG, QD
     Route: 048
     Dates: start: 20110823, end: 20110915
  10. CRESTOR [Concomitant]
  11. VICODIN ES [Concomitant]
     Dosage: 7.5-750

REACTIONS (5)
  - FEELING HOT [None]
  - ERYTHEMA [None]
  - OEDEMA PERIPHERAL [None]
  - OEDEMA [None]
  - GAIT SPASTIC [None]
